FAERS Safety Report 10229987 (Version 2)
Quarter: 2014Q2

REPORT INFORMATION
  Report Type: Spontaneous
  Country: US (occurrence: US)
  Receive Date: 20140611
  Receipt Date: 20140626
  Transmission Date: 20141212
  Serious: Yes (Hospitalization, Other)
  Sender: FDA-Public Use
  Company Number: US-PFIZER INC-2014157462

PATIENT
  Age: 70 Year
  Sex: Male
  Weight: 65.76 kg

DRUGS (2)
  1. LYRICA [Suspect]
     Indication: RESTLESS LEGS SYNDROME
     Dosage: 150 MG, 1X/DAY
     Route: 048
     Dates: start: 2012, end: 201406
  2. LYRICA [Suspect]
     Dosage: 300 MG, 1X/DAY
     Route: 048
     Dates: start: 201406, end: 201406

REACTIONS (5)
  - Off label use [Unknown]
  - Urinary retention [Unknown]
  - Anticholinergic syndrome [Unknown]
  - Dry mouth [Unknown]
  - Speech disorder [Unknown]
